FAERS Safety Report 17396750 (Version 1)
Quarter: 2020Q1

REPORT INFORMATION
  Report Type: Spontaneous
  Country: AU (occurrence: AU)
  Receive Date: 20200210
  Receipt Date: 20200210
  Transmission Date: 20200409
  Serious: Yes (Other)
  Sender: FDA-Public Use
  Company Number: AU-ACTELION-A-CH2020-200501

PATIENT
  Sex: Female

DRUGS (4)
  1. BOSENTAN ACTELION [Suspect]
     Active Substance: BOSENTAN
     Indication: PULMONARY ARTERIAL HYPERTENSION
     Dosage: 62.5 MG, BID
     Route: 048
     Dates: start: 201609, end: 20200106
  2. TADALAFIL. [Suspect]
     Active Substance: TADALAFIL
     Dosage: 40 MG, OD
     Route: 048
     Dates: start: 20191212
  3. TADALAFIL. [Suspect]
     Active Substance: TADALAFIL
     Indication: PULMONARY ARTERIAL HYPERTENSION
     Dosage: 30 MG, OD
     Route: 048
     Dates: start: 201810, end: 20191211
  4. BOSENTAN ACTELION [Suspect]
     Active Substance: BOSENTAN
     Dosage: 125 MG, BID
     Route: 048
     Dates: start: 20200107

REACTIONS (4)
  - Pulmonary arterial hypertension [Not Recovered/Not Resolved]
  - Exercise tolerance decreased [Not Recovered/Not Resolved]
  - Condition aggravated [Not Recovered/Not Resolved]
  - Brain natriuretic peptide increased [Not Recovered/Not Resolved]

NARRATIVE: CASE EVENT DATE: 2019
